FAERS Safety Report 5091380-5 (Version None)
Quarter: 2006Q3

REPORT INFORMATION
  Report Type: 
  Country: None (occurrence: None)
  Receive Date: 20060727
  Receipt Date: 20060414
  Transmission Date: 20061208
  Serious: Yes (Other)
  Sender: FDA-Public Use
  Company Number: 2006051698

PATIENT
  Age: 58 Year
  Sex: Female
  Weight: 50.8029 kg

DRUGS (11)
  1. LYRICA [Suspect]
     Indication: NEURALGIA
     Dosage: 50 MG (50 MG,1 IN 1 D)
     Dates: start: 20060101
  2. TRAMADOL HCL [Concomitant]
  3. SYNTHROID [Concomitant]
  4. CENESTIN [Concomitant]
  5. FOSAMAX [Concomitant]
  6. KLONOPIN [Concomitant]
  7. NEFAZODONE HCL [Concomitant]
  8. AMANTADINE HCL [Concomitant]
  9. NIACIN [Concomitant]
  10. VITAMINS (VITAMINS) [Concomitant]
  11. GENERAL NUTRIENTS/HERBAL NOS (GENERAL NUTRIENTS, HERBAL NOS) [Concomitant]

REACTIONS (4)
  - BREAKTHROUGH PAIN [None]
  - FLUID RETENTION [None]
  - JOINT SWELLING [None]
  - WEIGHT INCREASED [None]
